FAERS Safety Report 11966650 (Version 1)
Quarter: 2016Q1

REPORT INFORMATION
  Report Type: Spontaneous
  Country: IT (occurrence: IT)
  Receive Date: 20160127
  Receipt Date: 20160127
  Transmission Date: 20160526
  Serious: Yes (Other)
  Sender: FDA-Public Use
  Company Number: IT-JNJFOC-20160117125

PATIENT

DRUGS (4)
  1. INFLIXIMAB, RECOMBINANT [Suspect]
     Active Substance: INFLIXIMAB
     Indication: JUVENILE IDIOPATHIC ARTHRITIS
     Route: 042
  2. ADALIMUMAB [Suspect]
     Active Substance: ADALIMUMAB
     Indication: IRIDOCYCLITIS
     Route: 065
  3. ADALIMUMAB [Suspect]
     Active Substance: ADALIMUMAB
     Indication: JUVENILE IDIOPATHIC ARTHRITIS
     Route: 065
  4. INFLIXIMAB, RECOMBINANT [Suspect]
     Active Substance: INFLIXIMAB
     Indication: IRIDOCYCLITIS
     Route: 042

REACTIONS (10)
  - Infection [Unknown]
  - Skin reaction [Unknown]
  - Irritability [Unknown]
  - Menometrorrhagia [Unknown]
  - Headache [Unknown]
  - Weight decreased [Unknown]
  - Infusion related reaction [Unknown]
  - Off label use [Unknown]
  - Product use issue [Unknown]
  - Gastrointestinal disorder [Unknown]
